FAERS Safety Report 15460999 (Version 1)
Quarter: 2018Q4

REPORT INFORMATION
  Report Type: Spontaneous
  Country: US (occurrence: US)
  Receive Date: 20181003
  Receipt Date: 20181003
  Transmission Date: 20190204
  Serious: No
  Sender: FDA-Public Use
  Company Number: US-PERRIGO-18US006234

PATIENT
  Age: 65 Year
  Sex: Male
  Weight: 72.56 kg

DRUGS (1)
  1. IMIQUIMOD. [Suspect]
     Active Substance: IMIQUIMOD
     Indication: WRONG PRODUCT ADMINISTERED
     Dosage: 250 MG, SINGLE
     Route: 048
     Dates: start: 20180610, end: 20180610

REACTIONS (7)
  - Fatigue [Unknown]
  - Chest pain [Unknown]
  - Wrong product administered [Recovered/Resolved]
  - Pyrexia [Unknown]
  - Chills [Unknown]
  - Accidental exposure to product [Recovered/Resolved]
  - Myalgia [Unknown]

NARRATIVE: CASE EVENT DATE: 20180610
